FAERS Safety Report 21989470 (Version 1)
Quarter: 2023Q1

REPORT INFORMATION
  Report Type: Spontaneous
  Country: US (occurrence: None)
  Receive Date: 20230213
  Receipt Date: 20230213
  Transmission Date: 20230418
  Serious: Yes (Hospitalization)
  Sender: FDA-Public Use
  Company Number: None

PATIENT
  Age: 85 Year
  Sex: Male
  Weight: 89 kg

DRUGS (1)
  1. CEFEPIME [Suspect]
     Active Substance: CEFEPIME HYDROCHLORIDE
     Indication: Pneumonia
     Dosage: FREQUENCY : TWICE A DAY;?
     Dates: start: 20230112, end: 20230113

REACTIONS (2)
  - Nephropathy toxic [None]
  - Hypersensitivity [None]

NARRATIVE: CASE EVENT DATE: 20230112
